FAERS Safety Report 9528626 (Version 1)
Quarter: 2013Q3

REPORT INFORMATION
  Report Type: Spontaneous
  Country: US (occurrence: US)
  Receive Date: 20130917
  Receipt Date: 20130917
  Transmission Date: 20140515
  Serious: No
  Sender: FDA-Public Use
  Company Number: US-BANPHARM-20120041

PATIENT
  Age: 81 Year
  Sex: Female
  Weight: 77.27 kg

DRUGS (7)
  1. ZYRTEC LIQUID GELS 10 MG [Suspect]
     Indication: URTICARIA
     Dosage: 1 DF, ONCE,
     Route: 048
     Dates: start: 20120802
  2. VITAMIN D 5000 MG [Concomitant]
     Dosage: 1X DAILY
     Route: 048
  3. MULTIVITAMIN 3500 MG [Concomitant]
     Dosage: 1X DAILY
     Route: 048
  4. FISH OIL 1000 MG [Concomitant]
     Dosage: 1X DAILY
     Route: 048
  5. PAXIL [Concomitant]
     Dosage: UNK
     Route: 048
  6. THYROID MEDICATION [Concomitant]
     Dosage: UNK
     Route: 048
  7. HIGH BLOOD PRESSURE MEDICATION [Concomitant]
     Dosage: UNK
     Route: 048

REACTIONS (2)
  - Diarrhoea [Recovered/Resolved]
  - Off label use [Unknown]
